FAERS Safety Report 5528376-2 (Version None)
Quarter: 2007Q4

REPORT INFORMATION
  Report Type: 
  Country: None (occurrence: None)
  Receive Date: 20071121
  Receipt Date: 20070919
  Transmission Date: 20080405
  Serious: No
  Sender: FDA-Public Use
  Company Number: 2007EU002164

PATIENT
  Age: 12 Year
  Sex: Female

DRUGS (1)
  1. PROTOPIC [Suspect]
     Indication: DERMATITIS ATOPIC
     Dosage: 0.03 %, PRN, TOPICAL
     Route: 061
     Dates: start: 20050201, end: 20070101

REACTIONS (1)
  - SKIN PAPILLOMA [None]
